FAERS Safety Report 9049770 (Version 4)
Quarter: 2015Q4

REPORT INFORMATION
  Report Type: Spontaneous
  Country: US (occurrence: US)
  Receive Date: 20130205
  Receipt Date: 20151228
  Transmission Date: 20160305
  Serious: Yes (Hospitalization, Other)
  Sender: FDA-Public Use
  Company Number: US-BAYER-2013-015064

PATIENT
  Age: 49 Year
  Sex: Female
  Weight: 74.83 kg

DRUGS (12)
  1. LISINOPRIL. [Concomitant]
     Active Substance: LISINOPRIL
     Indication: HYPERTENSION
     Dosage: UNK
     Dates: start: 2008
  2. ADVAIR HFA [Concomitant]
     Active Substance: FLUTICASONE PROPIONATE\SALMETEROL XINAFOATE
     Dosage: 250/50 TWICE A DAY
  3. SUDAFED [PSEUDOEPHEDRINE HYDROCHLORIDE] [Concomitant]
     Dosage: UNK
     Dates: start: 200807
  4. ALDACTONE [Concomitant]
     Active Substance: SPIRONOLACTONE
     Dosage: UNK
     Dates: start: 2008
  5. TOPROL XL [Concomitant]
     Active Substance: METOPROLOL SUCCINATE
  6. BENAZEPRIL [Concomitant]
     Active Substance: BENAZEPRIL HYDROCHLORIDE
  7. IRON FOLIC [Concomitant]
  8. BENADRYL [ACRIVASTINE] [Concomitant]
     Dosage: UNK
     Dates: start: 2008
  9. CLARITIN [Concomitant]
     Active Substance: LORATADINE
     Dosage: 10 MG, DAILY
  10. LOW-OGESTREL [Concomitant]
     Active Substance: ETHINYL ESTRADIOL\NORGESTREL
     Dosage: UNK
     Dates: start: 20080905
  11. YAZ [Suspect]
     Active Substance: DROSPIRENONE\ETHINYL ESTRADIOL
     Dosage: UNK
     Dates: start: 2007, end: 2008
  12. ALBUTEROL. [Concomitant]
     Active Substance: ALBUTEROL
     Dosage: MDI, P.R.N.

REACTIONS (11)
  - Anxiety [None]
  - Cholelithiasis [None]
  - Dyspnoea [None]
  - Pain [None]
  - Embolism arterial [None]
  - Emotional distress [None]
  - General physical health deterioration [None]
  - Cardiac failure [None]
  - Injury [None]
  - Heart rate increased [None]
  - Deep vein thrombosis [None]

NARRATIVE: CASE EVENT DATE: 20080905
